FAERS Safety Report 7519268-8 (Version None)
Quarter: 2011Q2

REPORT INFORMATION
  Report Type: 
  Country: None (occurrence: None)
  Receive Date: 20110523
  Receipt Date: 20110516
  Transmission Date: 20111010
  Serious: Yes (Other)
  Sender: FDA-Public Use
  Company Number: 2010SP028523

PATIENT
  Age: 60 Year
  Sex: Male

DRUGS (4)
  1. BENZTROPINE MESYLATE [Concomitant]
  2. OXCARBAZEPINE [Concomitant]
  3. SAPHRIS [Suspect]
     Indication: PRODUCT USED FOR UNKNOWN INDICATION
     Dosage: 10 MG, QD, PO
     Route: 048
     Dates: start: 20100201
  4. SEROQUEL [Suspect]
     Indication: PRODUCT USED FOR UNKNOWN INDICATION
     Dosage: 300 MG

REACTIONS (3)
  - HALLUCINATION, AUDITORY [None]
  - BRUXISM [None]
  - WEIGHT INCREASED [None]
